FAERS Safety Report 17307211 (Version 2)
Quarter: 2020Q1

REPORT INFORMATION
  Report Type: Spontaneous
  Country: US (occurrence: US)
  Receive Date: 20200123
  Receipt Date: 20200215
  Transmission Date: 20200409
  Serious: Yes (Hospitalization, Other)
  Sender: FDA-Public Use
  Company Number: US-AUROBINDO-AUR-APL-2020-003162

PATIENT
  Age: 31 Year
  Sex: Male

DRUGS (1)
  1. LOPERAMIDE TABLET [Suspect]
     Active Substance: LOPERAMIDE
     Indication: PRODUCT USED FOR UNKNOWN INDICATION
     Dosage: 8 MILLIGRAM, DAILY (OVER A YEAR) (OVER 100 TABLETS)
     Route: 048

REACTIONS (11)
  - Cardiomyopathy [Unknown]
  - Arrhythmia [Unknown]
  - Heart rate increased [Unknown]
  - Respiratory rate increased [Unknown]
  - Overdose [Unknown]
  - Syncope [Unknown]
  - Toxicity to various agents [Unknown]
  - Electrocardiogram QT prolonged [Unknown]
  - Blood pressure increased [Unknown]
  - Tachycardia [Unknown]
  - Drug abuse [Unknown]
